FAERS Safety Report 10006897 (Version 3)
Quarter: 2015Q3

REPORT INFORMATION
  Report Type: Spontaneous
  Country: US (occurrence: US)
  Receive Date: 20140313
  Receipt Date: 20150813
  Transmission Date: 20151125
  Serious: No
  Sender: FDA-Public Use
  Company Number: US-GILEAD-2012-0065860

PATIENT
  Age: 48 Year
  Sex: Female

DRUGS (4)
  1. LETAIRIS [Suspect]
     Active Substance: AMBRISENTAN
     Indication: PULMONARY HYPERTENSION
  2. LETAIRIS [Suspect]
     Active Substance: AMBRISENTAN
     Indication: DRUG ABUSE
  3. TYVASO [Suspect]
     Active Substance: TREPROSTINIL
  4. LETAIRIS [Suspect]
     Active Substance: AMBRISENTAN
     Indication: COR PULMONALE CHRONIC
     Dosage: 10 MG, QD
     Route: 048
     Dates: start: 20080324

REACTIONS (1)
  - Cough [Unknown]
